FAERS Safety Report 6334949-X (Version None)
Quarter: 2009Q3

REPORT INFORMATION
  Report Type: 
  Country: None (occurrence: None)
  Receive Date: 20090828
  Receipt Date: 20090828
  Transmission Date: 20100115
  Serious: Yes (Other)
  Sender: FDA-Public Use
  Company Number: None

PATIENT
  Sex: Male
  Weight: 74.8435 kg

DRUGS (2)
  1. ACETAMINOPHEN AND HYDROCODONE BITARTRATE [Suspect]
     Indication: INTERVERTEBRAL DISC DEGENERATION
     Dosage: Q 6 HRS PO
     Route: 048
     Dates: start: 20061023, end: 20070917
  2. ACETAMINOPHEN AND HYDROCODONE BITARTRATE [Suspect]
     Indication: SPINAL OSTEOARTHRITIS
     Dosage: Q 6 HRS PO
     Route: 048
     Dates: start: 20061023, end: 20070917

REACTIONS (2)
  - ABDOMINAL DISCOMFORT [None]
  - PRODUCT SUBSTITUTION ISSUE [None]
